FAERS Safety Report 6712848-9 (Version None)
Quarter: 2010Q2

REPORT INFORMATION
  Report Type: 
  Country: None (occurrence: None)
  Receive Date: 20100506
  Receipt Date: 20100422
  Transmission Date: 20101027
  Serious: Yes (Hospitalization, Other)
  Sender: FDA-Public Use
  Company Number: NG-RANBAXY-2009R3-29310

PATIENT

DRUGS (5)
  1. NEVIRAPINE [Suspect]
     Indication: HIV INFECTION
     Dosage: UNK
     Route: 065
  2. SEPTRIN [Suspect]
     Indication: DRUG USE FOR UNKNOWN INDICATION
     Dosage: UNK
     Route: 065
  3. LAMIVUDINE [Suspect]
     Indication: HIV INFECTION
     Route: 065
  4. ZIDOVUDINE [Suspect]
     Indication: HIV INFECTION
     Route: 065
  5. LOPINAVIR BOOSTED RITONAVIR [Concomitant]
     Indication: HIV INFECTION
     Route: 065

REACTIONS (2)
  - DRUG EXPOSURE DURING PREGNANCY [None]
  - STEVENS-JOHNSON SYNDROME [None]
